FAERS Safety Report 10093934 (Version 1)
Quarter: 2014Q2

REPORT INFORMATION
  Report Type: Spontaneous
  Country: US (occurrence: US)
  Receive Date: 20140421
  Receipt Date: 20140421
  Transmission Date: 20141212
  Serious: No
  Sender: FDA-Public Use
  Company Number: US-SA-2014SA032605

PATIENT
  Age: 56 Year
  Sex: Female

DRUGS (1)
  1. ALLEGRA [Suspect]
     Dosage: DOSE- 3 PILLS
     Route: 048
     Dates: start: 20140309

REACTIONS (2)
  - Expired product administered [Unknown]
  - Extra dose administered [Unknown]
